FAERS Safety Report 7062454-4 (Version None)
Quarter: 2010Q4

REPORT INFORMATION
  Report Type: 
  Country: None (occurrence: None)
  Receive Date: 20101026
  Receipt Date: 20091009
  Transmission Date: 20110411
  Serious: No
  Sender: FDA-Public Use
  Company Number: US-PFIZER INC-2009283176

PATIENT
  Age: 58 Year
  Sex: Male
  Weight: 109 kg

DRUGS (1)
  1. LIPITOR [Suspect]
     Indication: BLOOD CHOLESTEROL ABNORMAL
     Dosage: 80 MG, UNK
     Dates: end: 20090101

REACTIONS (4)
  - DRUG INEFFECTIVE [None]
  - FAECES DISCOLOURED [None]
  - LABORATORY TEST ABNORMAL [None]
  - LIVER DISORDER [None]
